FAERS Safety Report 6771188-2 (Version None)
Quarter: 2010Q2

REPORT INFORMATION
  Report Type: 
  Country: None (occurrence: None)
  Receive Date: 20100616
  Receipt Date: 20100607
  Transmission Date: 20101027
  Serious: Yes (Hospitalization)
  Sender: FDA-Public Use
  Company Number: DE-WYE-G06231310

PATIENT
  Sex: Male

DRUGS (3)
  1. LORAZEPAM [Suspect]
     Dosage: 25 TABLETS MAXIMAL
     Route: 048
     Dates: start: 20100606, end: 20100606
  2. MIRTAZAPINE [Suspect]
     Dosage: 50 TABLETS OF 15 MG MAXIMAL
     Route: 048
     Dates: start: 20100606, end: 20100606
  3. TREVILOR RETARD [Suspect]
     Dosage: 100 TABLETS OF 75 MG MAXIMAL
     Route: 048
     Dates: start: 20100606, end: 20100606

REACTIONS (5)
  - DYSARTHRIA [None]
  - FATIGUE [None]
  - INTENTIONAL OVERDOSE [None]
  - SUICIDE ATTEMPT [None]
  - VOMITING [None]
